FAERS Safety Report 5106908-6 (Version None)
Quarter: 2006Q3

REPORT INFORMATION
  Report Type: 
  Country: None (occurrence: None)
  Receive Date: 20060913
  Receipt Date: 20060830
  Transmission Date: 20061208
  Serious: Yes (Hospitalization)
  Sender: FDA-Public Use
  Company Number: 2006-BP-10065RO

PATIENT
  Age: 75 Year
  Sex: Female

DRUGS (4)
  1. DIGOXIN [Suspect]
     Indication: ATRIAL FIBRILLATION
     Dosage: 0.25 MG, PO
     Route: 048
  2. ACENOCOUMAROL (ACENOCOUMAROL) [Concomitant]
  3. LISINOPRIL [Concomitant]
  4. DIGOXIN [Concomitant]

REACTIONS (11)
  - ATRIAL FIBRILLATION [None]
  - DYSPNOEA [None]
  - GENERAL PHYSICAL HEALTH DETERIORATION [None]
  - HYPOTENSION [None]
  - LEFT VENTRICULAR FAILURE [None]
  - RALES [None]
  - RENAL FAILURE [None]
  - TACHYPNOEA [None]
  - THERAPEUTIC AGENT TOXICITY [None]
  - VENTRICULAR HYPERTROPHY [None]
  - VENTRICULAR TACHYCARDIA [None]
